FAERS Safety Report 6587777-4 (Version None)
Quarter: 2010Q1

REPORT INFORMATION
  Report Type: 
  Country: None (occurrence: None)
  Receive Date: 20100218
  Receipt Date: 20100205
  Transmission Date: 20100710
  Serious: Yes (Other)
  Sender: FDA-Public Use
  Company Number: PHEH2010US00765

PATIENT
  Sex: Female
  Weight: 65.76 kg

DRUGS (3)
  1. COMBIPATCH [Suspect]
     Indication: HORMONE REPLACEMENT THERAPY
     Dosage: EST50/NORE250, DAILY
     Route: 061
     Dates: start: 20091222, end: 20091223
  2. COMBIPATCH [Suspect]
     Indication: MENSTRUAL CYCLE MANAGEMENT
     Dosage: 150 MG
  3. COMBIPATCH [Suspect]
     Dosage: 50EST/140NORE, EVERY THREE DAYS

REACTIONS (18)
  - AGITATION [None]
  - APPLICATION SITE ERYTHEMA [None]
  - APPLICATION SITE EXFOLIATION [None]
  - APPLICATION SITE VESICLES [None]
  - BRONCHIECTASIS [None]
  - BRONCHITIS [None]
  - BURNS SECOND DEGREE [None]
  - DISCOMFORT [None]
  - ESCHAR [None]
  - HEART RATE INCREASED [None]
  - MENSTRUATION IRREGULAR [None]
  - MYCOPLASMA INFECTION [None]
  - PRODUCTIVE COUGH [None]
  - RASH [None]
  - SKIN REACTION [None]
  - SKIN ULCER [None]
  - VIRAL INFECTION [None]
  - WEIGHT DECREASED [None]
